FAERS Safety Report 18365403 (Version 1)
Quarter: 2020Q4

REPORT INFORMATION
  Report Type: Spontaneous
  Country: US (occurrence: US)
  Receive Date: 20201009
  Receipt Date: 20201009
  Transmission Date: 20210114
  Serious: Yes (Other)
  Sender: FDA-Public Use
  Company Number: US-TAKEDA-2020TUS041776

PATIENT
  Age: 69 Year
  Sex: Female

DRUGS (1)
  1. ICLUSIG [Suspect]
     Active Substance: PONATINIB
     Indication: CHRONIC MYELOID LEUKAEMIA
     Dosage: 30 MILLIGRAM
     Route: 065

REACTIONS (8)
  - Dysstasia [Unknown]
  - Asthenia [Unknown]
  - Chronic myeloid leukaemia [Not Recovered/Not Resolved]
  - Groin pain [Unknown]
  - Pericardial effusion [Unknown]
  - Pneumonia [Unknown]
  - Headache [Unknown]
  - Blood pressure increased [Unknown]
